FAERS Safety Report 17998080 (Version 4)
Quarter: 2021Q1

REPORT INFORMATION
  Report Type: Spontaneous
  Country: US (occurrence: US)
  Receive Date: 20200709
  Receipt Date: 20210126
  Transmission Date: 20210419
  Serious: Yes (Other)
  Sender: FDA-Public Use
  Company Number: US-GILEAD-2020-0479623

PATIENT
  Age: 66 Year
  Sex: Male

DRUGS (2)
  1. DESCOVY [Concomitant]
     Active Substance: EMTRICITABINE\TENOFOVIR ALAFENAMIDE FUMARATE
     Indication: HIV INFECTION
  2. TRUVADA [Suspect]
     Active Substance: EMTRICITABINE\TENOFOVIR DISOPROXIL FUMARATE
     Indication: HIV INFECTION
     Dosage: UNK
     Route: 048
     Dates: start: 20101119, end: 20190815

REACTIONS (7)
  - Anxiety [Unknown]
  - Emotional distress [Unknown]
  - Osteoporosis [Not Recovered/Not Resolved]
  - Anhedonia [Unknown]
  - Osteopenia [Not Recovered/Not Resolved]
  - Pain [Unknown]
  - Bone density decreased [Unknown]

NARRATIVE: CASE EVENT DATE: 2012
